FAERS Safety Report 6064257-6 (Version None)
Quarter: 2009Q1

REPORT INFORMATION
  Report Type: 
  Country: None (occurrence: None)
  Receive Date: 20090204
  Receipt Date: 20090127
  Transmission Date: 20090719
  Serious: Yes (Hospitalization)
  Sender: FDA-Public Use
  Company Number: NL-BIOGENIDEC-2008BI033875

PATIENT
  Age: 37 Year
  Sex: Female

DRUGS (2)
  1. AVONEX [Suspect]
     Indication: MULTIPLE SCLEROSIS
     Route: 030
     Dates: start: 20080715, end: 20081112
  2. DESOGESTREL AND ETHINYL ESTRADIOL [Concomitant]
     Indication: CONTRACEPTION

REACTIONS (6)
  - BRONCHITIS [None]
  - DEEP VEIN THROMBOSIS [None]
  - INFLUENZA [None]
  - MALAISE [None]
  - MALIGNANT PERITONEAL NEOPLASM [None]
  - METASTATIC NEOPLASM [None]
